FAERS Safety Report 19257083 (Version 1)
Quarter: 2021Q2

REPORT INFORMATION
  Report Type: Spontaneous
  Country: US (occurrence: US)
  Receive Date: 20210513
  Receipt Date: 20210513
  Transmission Date: 20210717
  Serious: Yes (Hospitalization)
  Sender: FDA-Public Use
  Company Number: US-ABBVIE-21K-163-3902701-00

PATIENT
  Sex: Male
  Weight: 102.15 kg

DRUGS (2)
  1. CREON [Suspect]
     Active Substance: PANCRELIPASE AMYLASE\PANCRELIPASE LIPASE\PANCRELIPASE PROTEASE
     Dosage: TAKE PER MEAL AND PER SNACKS
     Route: 048
  2. CREON [Suspect]
     Active Substance: PANCRELIPASE AMYLASE\PANCRELIPASE LIPASE\PANCRELIPASE PROTEASE
     Indication: PANCREATIC FAILURE
     Dosage: TAKE PER MEAL AND PER SNACKS
     Route: 048
     Dates: start: 201903

REACTIONS (5)
  - Abdominal distension [Not Recovered/Not Resolved]
  - Intentional product misuse [Recovered/Resolved]
  - Pancreatic carcinoma [Recovering/Resolving]
  - Constipation [Not Recovered/Not Resolved]
  - Muscle spasms [Not Recovered/Not Resolved]
